FAERS Safety Report 7368863-8 (Version None)
Quarter: 2011Q1

REPORT INFORMATION
  Report Type: 
  Country: None (occurrence: None)
  Receive Date: 20110323
  Receipt Date: 20110311
  Transmission Date: 20110831
  Serious: Yes (Death)
  Sender: FDA-Public Use
  Company Number: US-SANOFI-AVENTIS-2011SA015872

PATIENT
  Age: 75 Year
  Sex: Male

DRUGS (9)
  1. ALL OTHER THERAPEUTIC PRODUCTS [Concomitant]
  2. LOVENOX [Concomitant]
     Route: 058
  3. BETA BLOCKING AGENTS [Concomitant]
  4. VANCOMYCIN [Concomitant]
     Route: 042
  5. ACETAMINOPHEN [Concomitant]
  6. MULTAQ [Suspect]
     Indication: ATRIAL FLUTTER
     Route: 048
     Dates: start: 20110112, end: 20110202
  7. CEFTRIAXONE [Concomitant]
     Route: 042
  8. SACCHAROMYCES BOULARDII [Concomitant]
  9. OXYCODONE [Concomitant]

REACTIONS (2)
  - VENTRICULAR ARRHYTHMIA [None]
  - SUDDEN DEATH [None]
